FAERS Safety Report 25875777 (Version 1)
Quarter: 2025Q4

REPORT INFORMATION
  Report Type: Spontaneous
  Country: KR (occurrence: KR)
  Receive Date: 20251003
  Receipt Date: 20251003
  Transmission Date: 20260117
  Serious: Yes (Other)
  Sender: JOHNSON AND JOHNSON
  Company Number: KR-JNJFOC-20250931067

PATIENT
  Age: 56 Year
  Sex: Female

DRUGS (1)
  1. AMIVANTAMAB [Suspect]
     Active Substance: AMIVANTAMAB
     Indication: Product used for unknown indication
     Dosage: STARTED AT 50CC/HR
     Route: 065

REACTIONS (2)
  - Oxygen saturation decreased [Recovering/Resolving]
  - Infusion related reaction [Recovered/Resolved]
